FAERS Safety Report 8426639-4 (Version None)
Quarter: 2012Q2

REPORT INFORMATION
  Report Type: 
  Country: None (occurrence: None)
  Receive Date: 20120611
  Receipt Date: 20120611
  Transmission Date: 20120825
  Serious: Yes (Death)
  Sender: FDA-Public Use
  Company Number: US-PFIZER INC-2011002653

PATIENT
  Age: 48 Year
  Sex: Male

DRUGS (1)
  1. VERAPAMIL HCL [Suspect]

REACTIONS (1)
  - MEDICATION ERROR [None]
